FAERS Safety Report 8125416-1 (Version None)
Quarter: 2012Q1

REPORT INFORMATION
  Report Type: 
  Country: None (occurrence: None)
  Receive Date: 20120209
  Receipt Date: 20120130
  Transmission Date: 20120608
  Serious: Yes (Hospitalization, Other)
  Sender: FDA-Public Use
  Company Number: JP-MERCK-1110USA03352

PATIENT
  Age: 63 Year
  Sex: Female

DRUGS (7)
  1. FOSAMAX [Suspect]
     Indication: OSTEOPOROSIS
     Route: 048
     Dates: start: 20071201, end: 20110301
  2. SELBEX [Concomitant]
     Indication: GASTRITIS PROPHYLAXIS
     Route: 048
  3. ADENOSINE [Concomitant]
     Indication: DIZZINESS
     Route: 048
  4. AZULFIDINE [Concomitant]
     Route: 048
  5. URSO 250 [Concomitant]
     Route: 048
  6. PREDNISOLONE [Concomitant]
     Indication: RHEUMATOID ARTHRITIS
     Route: 048
  7. PEPCID [Concomitant]
     Indication: GASTRITIS PROPHYLAXIS
     Route: 048

REACTIONS (2)
  - OSTEONECROSIS [None]
  - SUBCUTANEOUS NODULE [None]
